FAERS Safety Report 6168331-5 (Version None)
Quarter: 2009Q2

REPORT INFORMATION
  Report Type: 
  Country: None (occurrence: None)
  Receive Date: 20090427
  Receipt Date: 20090421
  Transmission Date: 20091009
  Serious: Yes (Other)
  Sender: FDA-Public Use
  Company Number: US-PFIZER INC-2009168763

PATIENT
  Sex: Female
  Weight: 100 kg

DRUGS (3)
  1. LIPITOR [Suspect]
     Indication: BLOOD CHOLESTEROL INCREASED
     Dates: start: 20030101, end: 20040101
  2. POTASSIUM CHLORIDE [Concomitant]
     Indication: HYPERTENSION
  3. LASIX [Concomitant]
     Indication: HYPERTENSION

REACTIONS (4)
  - BREAST CANCER RECURRENT [None]
  - HEPATIC ENZYME INCREASED [None]
  - LIVER INJURY [None]
  - RENAL DISORDER [None]
